FAERS Safety Report 19819035 (Version 1)
Quarter: 2021Q3

REPORT INFORMATION
  Report Type: Spontaneous
  Country: US (occurrence: US)
  Receive Date: 20210912
  Receipt Date: 20210912
  Transmission Date: 20211014
  Serious: No
  Sender: FDA-Public Use
  Company Number: US-JNJFOC-20210906465

PATIENT
  Sex: Male

DRUGS (2)
  1. SPRAVATO [Suspect]
     Active Substance: ESKETAMINE
     Indication: SEIZURE
  2. SPRAVATO [Suspect]
     Active Substance: ESKETAMINE
     Indication: POST-TRAUMATIC STRESS DISORDER
     Route: 065

REACTIONS (4)
  - Off label use [Unknown]
  - Adverse drug reaction [Unknown]
  - Product dose omission issue [Unknown]
  - Product use in unapproved indication [Unknown]
